FAERS Safety Report 9515171 (Version 1)
Quarter: 2013Q1

REPORT INFORMATION
  Report Type: Spontaneous
  Country: US (occurrence: None)
  Receive Date: 20130305
  Receipt Date: 20130305
  Transmission Date: 20140127
  Serious: Yes (Other)
  Sender: FDA-Public Use
  Company Number: 163-21880-12101793

PATIENT
  Age: 82 Year
  Sex: Male

DRUGS (9)
  1. REVLIMID [Suspect]
     Indication: PLASMA CELL MYELOMA
     Dosage: 25 MG, 21 IN 21 D, PO
     Route: 048
     Dates: start: 20120515, end: 2012
  2. BACTRIM DS (BACTRIM) (UNKNOWN) [Concomitant]
  3. CLARITIN (LORATADINE) (UNKNOWN) [Concomitant]
  4. CARDURA (DOXAZOSIN MESILATE) (UNKNOWN) [Concomitant]
  5. ADVAIR DISKUS (SEERETIDE MITE) (UNKNOWN) [Concomitant]
  6. ALBUTEROL SULFATE (SALBUTAMOL SULFATE) (UNKNOWN) [Concomitant]
  7. CORDARONE (AMIODARONE HYDROCHLORIDE) (UNKNOWN) [Concomitant]
  8. COREG (CARVEDILOL) (UNKNOWN) [Concomitant]
  9. DEXAMETHASONE (DEXAMETHASONE) (UNKNOWN) [Concomitant]

REACTIONS (3)
  - Anaemia [None]
  - Cellulitis [None]
  - Neutropenia [None]
